FAERS Safety Report 17420862 (Version 1)
Quarter: 2020Q1

REPORT INFORMATION
  Report Type: Spontaneous
  Country: US (occurrence: US)
  Receive Date: 20200214
  Receipt Date: 20200214
  Transmission Date: 20200409
  Serious: No
  Sender: FDA-Public Use
  Company Number: US-TEVA-2020-US-1184422

PATIENT
  Sex: Female

DRUGS (6)
  1. VITAMIN D CAP [Concomitant]
     Dosage: 2000 UNIT
  2. VENLAFAXINE TAB 75 MG [Concomitant]
  3. COPAXONE [Concomitant]
     Active Substance: GLATIRAMER ACETATE
  4. ZOLOFT TAB 100 MG [Concomitant]
  5. COPAXONE [Suspect]
     Active Substance: GLATIRAMER ACETATE
     Indication: MULTIPLE SCLEROSIS
     Dosage: COPAXONE 40MG THRICE A WEEK
     Route: 058
     Dates: start: 20200110
  6. PLAQUENIL [Concomitant]
     Active Substance: HYDROXYCHLOROQUINE SULFATE

REACTIONS (1)
  - Injection site erythema [Not Recovered/Not Resolved]
